FAERS Safety Report 10069874 (Version 1)
Quarter: 2014Q2

REPORT INFORMATION
  Report Type: Report from Study
  Country: BR (occurrence: BR)
  Receive Date: 20140410
  Receipt Date: 20140410
  Transmission Date: 20141212
  Serious: Yes (Hospitalization, Other)
  Sender: FDA-Public Use
  Company Number: BR-BAYER-2014-053156

PATIENT
  Age: 17 Year
  Sex: Female

DRUGS (3)
  1. BETAFERON [Suspect]
     Indication: MULTIPLE SCLEROSIS
     Dosage: 1 ML, QOD
     Route: 058
     Dates: start: 2011
  2. LORATADINE [Concomitant]
     Indication: RHINITIS
     Dosage: 1 DF, PRN
     Route: 048
  3. OMEPRAZOLE [Concomitant]
     Indication: GASTROOESOPHAGEAL REFLUX DISEASE
     Dosage: 1 DF, QD
     Route: 048

REACTIONS (7)
  - Multiple sclerosis relapse [Recovered/Resolved]
  - Hemiparesis [Recovered/Resolved]
  - Gait disturbance [Recovered/Resolved]
  - Motor dysfunction [Recovered/Resolved]
  - Paraesthesia oral [Recovered/Resolved]
  - Multiple sclerosis relapse [None]
  - Drug ineffective [None]
